FAERS Safety Report 25152720 (Version 2)
Quarter: 2025Q2

REPORT INFORMATION
  Report Type: Spontaneous
  Country: US (occurrence: US)
  Receive Date: 20250403
  Receipt Date: 20250425
  Transmission Date: 20250717
  Serious: No
  Sender: IPSEN BIOPHARMACEUTICALS, INC.
  Company Number: US-IPSEN Group, Research and Development-2025-07026

PATIENT
  Age: 63 Year
  Sex: Female
  Weight: 70.8 kg

DRUGS (7)
  1. IQIRVO [Suspect]
     Active Substance: ELAFIBRANOR
     Indication: Primary biliary cholangitis
     Route: 048
  2. CORTISONE [Concomitant]
     Active Substance: CORTISONE
  3. VITAMIN D3 [Concomitant]
     Active Substance: CHOLECALCIFEROL
  4. POTASSIUM CITRATE [Concomitant]
     Active Substance: POTASSIUM CITRATE
  5. VITAMIN C [Concomitant]
     Active Substance: ASCORBIC ACID
  6. MINERALS\VITAMINS [Concomitant]
     Active Substance: MINERALS\VITAMINS
  7. URSODIOL [Concomitant]
     Active Substance: URSODIOL

REACTIONS (2)
  - Arthralgia [Unknown]
  - Muscle spasms [Unknown]
